FAERS Safety Report 25336406 (Version 1)
Quarter: 2025Q2

REPORT INFORMATION
  Report Type: Spontaneous
  Country: US (occurrence: None)
  Receive Date: 20250520
  Receipt Date: 20250520
  Transmission Date: 20250716
  Serious: No
  Sender: INCYTE
  Company Number: US-INCYTE CORPORATION-2025IN005132

PATIENT

DRUGS (1)
  1. JAKAFI [Suspect]
     Active Substance: RUXOLITINIB
     Indication: Graft versus host disease
     Dosage: 10 MILLIGRAM, BID

REACTIONS (10)
  - Eye irritation [Recovering/Resolving]
  - Eye pain [Recovering/Resolving]
  - Acrochordon [Unknown]
  - Nail ridging [Unknown]
  - Oral pain [Unknown]
  - Dry mouth [Unknown]
  - Lacrimation increased [Unknown]
  - Arthralgia [Unknown]
  - Feeling abnormal [Unknown]
  - Diarrhoea [Unknown]
